FAERS Safety Report 5993144-4 (Version None)
Quarter: 2008Q4

REPORT INFORMATION
  Report Type: 
  Country: None (occurrence: None)
  Receive Date: 20081210
  Receipt Date: 20081210
  Transmission Date: 20090506
  Serious: Yes (Life-Threatening, Hospitalization, Other)
  Sender: FDA-Public Use
  Company Number: None

PATIENT
  Age: 32 Year
  Sex: Female
  Weight: 73.4827 kg

DRUGS (3)
  1. PROMETHAZINE [Suspect]
     Indication: FOOD POISONING
     Dosage: 25MG 4-6 HOURS PO
     Route: 048
     Dates: start: 20080717, end: 20080718
  2. PROMETHAZINE [Suspect]
     Indication: NAUSEA
     Dosage: 25MG 4-6 HOURS PO
     Route: 048
     Dates: start: 20080717, end: 20080718
  3. PROMETHAZINE [Suspect]
     Indication: VOMITING
     Dosage: 25MG 4-6 HOURS PO
     Route: 048
     Dates: start: 20080717, end: 20080718

REACTIONS (15)
  - ABNORMAL BEHAVIOUR [None]
  - COORDINATION ABNORMAL [None]
  - DYSPNOEA [None]
  - HALLUCINATION [None]
  - IRRITABILITY [None]
  - LOCAL SWELLING [None]
  - LOSS OF CONSCIOUSNESS [None]
  - MENTAL DISORDER [None]
  - MUSCLE TWITCHING [None]
  - OEDEMA PERIPHERAL [None]
  - PANIC ATTACK [None]
  - PRURITUS [None]
  - SWELLING FACE [None]
  - TREATMENT NONCOMPLIANCE [None]
  - URTICARIA [None]
